FAERS Safety Report 20414212 (Version 1)
Quarter: 2022Q1

REPORT INFORMATION
  Report Type: Spontaneous
  Country: KR (occurrence: KR)
  Receive Date: 20220202
  Receipt Date: 20220202
  Transmission Date: 20220423
  Serious: Yes (Death)
  Sender: FDA-Public Use
  Company Number: KR-STRIDES ARCOLAB LIMITED-2022SP000819

PATIENT
  Age: 1 Year
  Sex: Female

DRUGS (13)
  1. ETOPOSIDE [Suspect]
     Active Substance: ETOPOSIDE
     Indication: Medulloblastoma
     Dosage: UNK, INDUCTION THERAPY WITH CECV REGIMEN
     Route: 065
  2. ETOPOSIDE [Suspect]
     Active Substance: ETOPOSIDE
     Dosage: UNK, INDUCTION THERAPY WITH CEIV REGIMEN
     Route: 065
  3. ETOPOSIDE [Suspect]
     Active Substance: ETOPOSIDE
     Dosage: 250 MILLIGRAM/SQ. METER, TANDEM HIGH-DOSE CHEMOTHERAPY AND AUTOLOGOUS STEM CELL TRANSPLANTATION (HDC
     Route: 065
  4. CARBOPLATIN [Suspect]
     Active Substance: CARBOPLATIN
     Indication: Medulloblastoma
     Dosage: UNK, INDUCTION THERAPY WITH CEIV REGIMEN
     Route: 065
  5. CARBOPLATIN [Suspect]
     Active Substance: CARBOPLATIN
     Dosage: 500 MILLIGRAM/SQ. METER, UNK, TANDEM HIGH-DOSE CHEMOTHERAPY AND AUTOLOGOUS STEM CELL TRANSPLANTATION
     Route: 065
  6. THIOTEPA [Suspect]
     Active Substance: THIOTEPA
     Indication: Medulloblastoma
     Dosage: 300 MILLIGRAM/SQ. METER, TANDEM HIGH-DOSE CHEMOTHERAPY AND AUTOLOGOUS STEM CELL TRANSPLANTATION (HDC
     Route: 065
  7. CYCLOPHOSPHAMIDE [Suspect]
     Active Substance: CYCLOPHOSPHAMIDE
     Indication: Medulloblastoma
     Dosage: UNK, INDUCTION THERAPY WITH CECV REGIMEN
     Route: 065
  8. CYCLOPHOSPHAMIDE [Suspect]
     Active Substance: CYCLOPHOSPHAMIDE
     Dosage: 1500 MILLIGRAM/SQ. METER, TANDEM HIGH-DOSE CHEMOTHERAPY AND AUTOLOGOUS STEM CELL TRANSPLANTATION (HD
     Route: 065
  9. MELPHALAN [Suspect]
     Active Substance: MELPHALAN
     Indication: Medulloblastoma
     Dosage: 60 MILLIGRAM/SQ. METER, TANDEM HIGH-DOSE CHEMOTHERAPY AND AUTOLOGOUS STEM CELL TRANSPLANTATION (HDCT
     Route: 065
  10. CISPLATIN [Concomitant]
     Active Substance: CISPLATIN
     Indication: Medulloblastoma
     Dosage: UNK, 6 CYCLES OF INDUCTION CHEMOTHERAPY WITH ALTERNATING CECV REGIMEN
     Route: 065
  11. VINCRISTINE [Concomitant]
     Active Substance: VINCRISTINE
     Indication: Medulloblastoma
     Dosage: UNK, 6 CYCLES OF INDUCTION CHEMOTHERAPY WITH ALTERNATING CEIV REGIMEN
     Route: 065
  12. VINCRISTINE [Concomitant]
     Active Substance: VINCRISTINE
     Dosage: UNK, 6 CYCLES OF INDUCTION CHEMOTHERAPY WITH ALTERNATING CECV REGIMEN
     Route: 065
  13. IFOSFAMIDE [Concomitant]
     Active Substance: IFOSFAMIDE
     Indication: Medulloblastoma
     Dosage: UNK, 6 CYCLES OF INDUCTION CHEMOTHERAPY WITH ALTERNATING CEIV REGIMEN
     Route: 065

REACTIONS (2)
  - Asphyxia [Fatal]
  - Off label use [Unknown]
